FAERS Safety Report 25140542 (Version 2)
Quarter: 2025Q2

REPORT INFORMATION
  Report Type: Other
  Country: CA (occurrence: CA)
  Receive Date: 20250331
  Receipt Date: 20250401
  Transmission Date: 20250716
  Serious: Yes (Life-Threatening, Other)
  Sender: APOTEX
  Company Number: CA-APOTEX-2025AP003538

PATIENT
  Age: 33 Year
  Sex: Female

DRUGS (7)
  1. ACETAMINOPHEN\TRAMADOL HYDROCHLORIDE [Interacting]
     Active Substance: ACETAMINOPHEN\TRAMADOL HYDROCHLORIDE
     Indication: Pain management
     Route: 065
  2. CITALOPRAM [Interacting]
     Active Substance: CITALOPRAM
     Indication: Product used for unknown indication
     Route: 065
  3. ESCITALOPRAM [Interacting]
     Active Substance: ESCITALOPRAM OXALATE
     Indication: Product used for unknown indication
     Route: 065
  4. MORPHINE [Interacting]
     Active Substance: MORPHINE
     Indication: Pain management
     Route: 065
  5. ULTIVA [Interacting]
     Active Substance: REMIFENTANIL HYDROCHLORIDE
     Indication: Sedative therapy
     Route: 041
  6. ULTIVA [Interacting]
     Active Substance: REMIFENTANIL HYDROCHLORIDE
     Indication: Rhinoplasty
  7. ULTIVA [Interacting]
     Active Substance: REMIFENTANIL HYDROCHLORIDE
     Indication: Analgesic therapy

REACTIONS (13)
  - Bradypnoea [Not Recovered/Not Resolved]
  - Drug interaction [Not Recovered/Not Resolved]
  - Delayed recovery from anaesthesia [Not Recovered/Not Resolved]
  - Feeling abnormal [Not Recovered/Not Resolved]
  - Hypoxia [Not Recovered/Not Resolved]
  - Inadequate analgesia [Not Recovered/Not Resolved]
  - Pain [Not Recovered/Not Resolved]
  - Sedation complication [Not Recovered/Not Resolved]
  - Transcription medication error [Not Recovered/Not Resolved]
  - Respiratory depression [Not Recovered/Not Resolved]
  - Heart rate increased [Not Recovered/Not Resolved]
  - Blood pressure systolic increased [Not Recovered/Not Resolved]
  - Blood pressure diastolic increased [Not Recovered/Not Resolved]
